FAERS Safety Report 11376571 (Version 4)
Quarter: 2015Q4

REPORT INFORMATION
  Report Type: Spontaneous
  Country: US (occurrence: US)
  Receive Date: 20150813
  Receipt Date: 20151210
  Transmission Date: 20160304
  Serious: Yes (Other)
  Sender: FDA-Public Use
  Company Number: US-PFIZER INC-2015265996

PATIENT
  Age: 60 Year
  Sex: Female
  Weight: 108 kg

DRUGS (2)
  1. RELPAX [Suspect]
     Active Substance: ELETRIPTAN HYDROBROMIDE
     Dosage: TOOK ONE WHEN HEADACHE FIRST START, IF IT DID NOT HELPED SHE TOOK ANOTHER ONE ONLY TWO IN 24 HOURS
  2. RELPAX [Suspect]
     Active Substance: ELETRIPTAN HYDROBROMIDE
     Indication: MIGRAINE
     Dosage: 40 MG, UNK

REACTIONS (3)
  - Fibromyalgia [Unknown]
  - Memory impairment [Unknown]
  - Weight increased [Unknown]
